FAERS Safety Report 12188399 (Version 1)
Quarter: 2016Q1

REPORT INFORMATION
  Report Type: Spontaneous
  Country: FR (occurrence: FR)
  Receive Date: 20160317
  Receipt Date: 20160317
  Transmission Date: 20160526
  Serious: Yes (Hospitalization, Other)
  Sender: FDA-Public Use
  Company Number: FR-AMGEN-FRASP2016031851

PATIENT
  Age: 46 Year
  Sex: Male
  Weight: 81 kg

DRUGS (14)
  1. MONTELUKAST [Suspect]
     Active Substance: MONTELUKAST SODIUM
     Indication: PRODUCT USED FOR UNKNOWN INDICATION
     Dosage: UNK
     Route: 048
  2. ESCITALOPRAM [Suspect]
     Active Substance: ESCITALOPRAM OXALATE
     Indication: PRODUCT USED FOR UNKNOWN INDICATION
     Dosage: UNK
     Route: 048
  3. ESCITALOPRAM [Suspect]
     Active Substance: ESCITALOPRAM OXALATE
     Dosage: 70 MG, QD
     Route: 048
     Dates: start: 20160125, end: 20160125
  4. CETIRIZINE [Suspect]
     Active Substance: CETIRIZINE HYDROCHLORIDE
     Indication: PRODUCT USED FOR UNKNOWN INDICATION
     Dosage: UNK
     Route: 048
  5. PROCORALAN [Suspect]
     Active Substance: IVABRADINE
     Dosage: 70 MG, QD
     Route: 048
     Dates: start: 20160125, end: 20160125
  6. PERINDOPRIL [Suspect]
     Active Substance: PERINDOPRIL
     Dosage: 10 MG - 17.5 MG,, QD
     Route: 048
     Dates: start: 20160125, end: 20160125
  7. ZOPICLONE [Suspect]
     Active Substance: ZOPICLONE
     Indication: PRODUCT USED FOR UNKNOWN INDICATION
     Dosage: UNK
     Route: 048
  8. ZOPICLONE [Suspect]
     Active Substance: ZOPICLONE
     Dosage: 37.5 MG, QD
     Route: 048
     Dates: start: 20160125, end: 20160125
  9. PERINDOPRIL [Suspect]
     Active Substance: PERINDOPRIL
     Indication: PRODUCT USED FOR UNKNOWN INDICATION
     Dosage: UNK
     Route: 048
  10. MONTELUKAST [Suspect]
     Active Substance: MONTELUKAST SODIUM
     Dosage: 40 MG - 70 MG,  QD
     Route: 048
     Dates: start: 20160125, end: 20160125
  11. PROCORALAN [Suspect]
     Active Substance: IVABRADINE
     Indication: PRODUCT USED FOR UNKNOWN INDICATION
     Dosage: UNK
     Route: 048
  12. COUMADINE [Suspect]
     Active Substance: WARFARIN SODIUM
     Indication: PRODUCT USED FOR UNKNOWN INDICATION
     Dosage: UNK
     Route: 048
  13. CETIRIZINE [Suspect]
     Active Substance: CETIRIZINE HYDROCHLORIDE
     Dosage: 40 MG - 70 MG, QD
     Route: 048
     Dates: start: 20160125, end: 20160125
  14. COUMADINE [Suspect]
     Active Substance: WARFARIN SODIUM
     Dosage: 100 MG - 140 MG, QD
     Route: 048
     Dates: start: 20160125, end: 20160125

REACTIONS (15)
  - Asthenia [Unknown]
  - Mydriasis [Unknown]
  - Medication error [Unknown]
  - Hypotonia [Unknown]
  - Ejection fraction decreased [Unknown]
  - Coma scale abnormal [Unknown]
  - Disorientation [Unknown]
  - Electrocardiogram QT prolonged [Unknown]
  - Fall [Unknown]
  - Amnesia [Unknown]
  - Bradycardia [Unknown]
  - Confusional state [Recovered/Resolved]
  - Overdose [Unknown]
  - Somnolence [Unknown]
  - International normalised ratio increased [Unknown]

NARRATIVE: CASE EVENT DATE: 20160124
